FAERS Safety Report 7128319 (Version 5)
Quarter: 2017Q4

REPORT INFORMATION
  Report Type: Spontaneous
  Country: US (occurrence: US)
  Receive Date: 20090924
  Receipt Date: 20171228
  Transmission Date: 20180321
  Serious: Yes (Hospitalization, Other)
  Sender: FDA-Public Use
  Company Number: US-ASTRAZENECA-2009UW04065

PATIENT
  Age: 628 Month
  Sex: Female
  Weight: 83 kg

DRUGS (15)
  1. PREDNISONE. [Concomitant]
     Active Substance: PREDNISONE
     Dosage: 60 MG FOR A PERIOD OF TIME
  2. PREDNISONE. [Concomitant]
     Active Substance: PREDNISONE
  3. SYMBICORT [Suspect]
     Active Substance: BUDESONIDE\FORMOTEROL FUMARATE DIHYDRATE
     Indication: EMPHYSEMA
     Dosage: 160/4.5MCG, TWO PUFFS, TWO TIMES A DAY
     Route: 055
     Dates: start: 201311
  4. TUDORZA PRESSAIR [Suspect]
     Active Substance: ACLIDINIUM BROMIDE
     Indication: CHRONIC OBSTRUCTIVE PULMONARY DISEASE
     Route: 055
     Dates: start: 201311
  5. SYMBICORT [Suspect]
     Active Substance: BUDESONIDE\FORMOTEROL FUMARATE DIHYDRATE
     Indication: BRONCHITIS CHRONIC
     Dosage: 160/4.5MCG, TWO PUFFS, TWO TIMES A DAY
     Route: 055
     Dates: start: 201311
  6. SYMBICORT [Suspect]
     Active Substance: BUDESONIDE\FORMOTEROL FUMARATE DIHYDRATE
     Indication: BRONCHITIS CHRONIC
     Dosage: FOR THE PAST 10 YEARS, 160/4.5MCG, TWO PUFFS, TWO TIMES A DAY
     Route: 055
  7. SEROQUEL [Suspect]
     Active Substance: QUETIAPINE FUMARATE
     Route: 048
  8. TUDORZA PRESSAIR [Suspect]
     Active Substance: ACLIDINIUM BROMIDE
     Indication: EMPHYSEMA
     Route: 055
     Dates: start: 201311
  9. SYMBICORT [Suspect]
     Active Substance: BUDESONIDE\FORMOTEROL FUMARATE DIHYDRATE
     Indication: BRONCHITIS CHRONIC
     Dosage: 160/4.5MCG, TWO PUFFS, TWO TIMES A DAY
     Route: 055
     Dates: start: 201311
  10. PROAIR HFA [Concomitant]
     Active Substance: ALBUTEROL SULFATE
     Indication: BRONCHITIS CHRONIC
     Dosage: EVERY 4 HOURS AS NEEDED
  11. TUDORZA PRESSAIR [Suspect]
     Active Substance: ACLIDINIUM BROMIDE
     Indication: CHRONIC OBSTRUCTIVE PULMONARY DISEASE
     Route: 055
     Dates: start: 2014, end: 20150807
  12. TUDORZA PRESSAIR [Suspect]
     Active Substance: ACLIDINIUM BROMIDE
     Indication: EMPHYSEMA
     Route: 055
     Dates: start: 2014, end: 20150807
  13. SYMBICORT [Suspect]
     Active Substance: BUDESONIDE\FORMOTEROL FUMARATE DIHYDRATE
     Indication: BRONCHITIS CHRONIC
     Dosage: FOR THE PAST 10 YEARS, 160/4.5MCG, TWO PUFFS, TWO TIMES A DAY
     Route: 055
  14. SYMBICORT [Suspect]
     Active Substance: BUDESONIDE\FORMOTEROL FUMARATE DIHYDRATE
     Indication: EMPHYSEMA
     Dosage: FOR THE PAST 10 YEARS, 160/4.5MCG, TWO PUFFS, TWO TIMES A DAY
     Route: 055
  15. DUONEB [Concomitant]
     Active Substance: ALBUTEROL SULFATE\IPRATROPIUM BROMIDE
     Indication: BRONCHITIS CHRONIC
     Dosage: EVERY 4 HOURS AS NEEDED

REACTIONS (23)
  - Vaginal prolapse [Unknown]
  - Pharyngitis [Unknown]
  - Lens disorder [Unknown]
  - Localised infection [Unknown]
  - Pulmonary congestion [Recovered/Resolved]
  - Peripheral swelling [Unknown]
  - Emphysema [Unknown]
  - Drug dose omission [Unknown]
  - Chest injury [Unknown]
  - Limb injury [Unknown]
  - Weight decreased [Unknown]
  - Visual impairment [Unknown]
  - Gait disturbance [Unknown]
  - Device issue [Unknown]
  - Weight increased [Unknown]
  - Joint swelling [Unknown]
  - Wound [Unknown]
  - Cerebrovascular accident [Unknown]
  - Pneumonia [Unknown]
  - Fall [Unknown]
  - Memory impairment [Unknown]
  - Wound haemorrhage [Unknown]
  - Dyspnoea [Unknown]

NARRATIVE: CASE EVENT DATE: 201310
